FAERS Safety Report 6458842-7 (Version None)
Quarter: 2009Q4

REPORT INFORMATION
  Report Type: 
  Country: None (occurrence: None)
  Receive Date: 20091125
  Receipt Date: 20091125
  Transmission Date: 20100525
  Serious: Yes (Life-Threatening, Hospitalization, Other)
  Sender: FDA-Public Use
  Company Number: None

PATIENT
  Age: 8 Year
  Sex: Female
  Weight: 23 kg

DRUGS (3)
  1. CYMBALTA [Suspect]
     Indication: ASPERGER'S DISORDER
     Dosage: 60 MG AT NIGHT
     Dates: start: 20090812, end: 20090815
  2. CYMBALTA [Suspect]
     Indication: ATTENTION DEFICIT/HYPERACTIVITY DISORDER
     Dosage: 60 MG AT NIGHT
     Dates: start: 20090812, end: 20090815
  3. CYMBALTA [Suspect]
     Indication: BIPOLAR DISORDER
     Dosage: 60 MG AT NIGHT
     Dates: start: 20090812, end: 20090815

REACTIONS (5)
  - ABNORMAL BEHAVIOUR [None]
  - HYPERSOMNIA [None]
  - PHYSICAL ASSAULT [None]
  - RESTLESSNESS [None]
  - SUICIDAL IDEATION [None]
